FAERS Safety Report 6884851-X (Version None)
Quarter: 2010Q3

REPORT INFORMATION
  Report Type: 
  Country: None (occurrence: None)
  Receive Date: 20100729
  Receipt Date: 20070910
  Transmission Date: 20110219
  Serious: No
  Sender: FDA-Public Use
  Company Number: US-PFIZER INC-2007075828

PATIENT
  Age: 36 Year
  Sex: Male

DRUGS (1)
  1. CELEBREX [Suspect]

REACTIONS (5)
  - DIZZINESS [None]
  - DYSPNOEA [None]
  - INFLUENZA LIKE ILLNESS [None]
  - OROPHARYNGEAL PAIN [None]
  - RASH GENERALISED [None]
